FAERS Safety Report 22366465 (Version 1)
Quarter: 2023Q2

REPORT INFORMATION
  Report Type: Spontaneous
  Country: US (occurrence: US)
  Receive Date: 20230525
  Receipt Date: 20230525
  Transmission Date: 20230721
  Serious: No
  Sender: FDA-Public Use
  Company Number: US-drreddys-SPO/USA/23/0164325

PATIENT
  Age: 18 Year

DRUGS (1)
  1. ACCUTANE [Suspect]
     Active Substance: ISOTRETINOIN
     Indication: Acne

REACTIONS (5)
  - Rash maculo-papular [Unknown]
  - Nodule [Unknown]
  - Dermal cyst [Unknown]
  - Skin hyperpigmentation [Unknown]
  - Xerosis [Unknown]

NARRATIVE: CASE EVENT DATE: 20221024
